FAERS Safety Report 8765629 (Version 2)
Quarter: 2012Q4

REPORT INFORMATION
  Report Type: 
  Country: AU (occurrence: AU)
  Receive Date: 20120903
  Receipt Date: 20120903
  Transmission Date: 20130627
  Serious: Yes (Hospitalization)
  Sender: FDA-Public Use
  Company Number: PHHY2012AU070725

PATIENT
  Age: 63 None
  Sex: Male
  Weight: 80 kg

DRUGS (7)
  1. SIMULECT [Suspect]
     Indication: PROPHYLAXIS AGAINST TRANSPLANT REJECTION
     Dosage: 20 mg, UNK
     Route: 042
     Dates: start: 20120501
  2. SIMULECT [Suspect]
     Dosage: 20 mg, UNK
     Route: 042
     Dates: start: 20120505
  3. TACROLIMUS [Concomitant]
     Indication: PROPHYLAXIS AGAINST TRANSPLANT REJECTION
     Dosage: Last dose 1.5 mg morning and 2 mg nocte
     Route: 048
     Dates: start: 20120501, end: 20120516
  4. MYCOPHENOLATE MOFETIL [Concomitant]
     Indication: PROPHYLAXIS AGAINST TRANSPLANT REJECTION
     Dosage: 1 g, BID
     Route: 048
     Dates: start: 20120501, end: 20120516
  5. MYCOPHENOLATE MOFETIL [Concomitant]
     Dosage: 1 g, BID
     Route: 048
     Dates: start: 20120620
  6. CYCLOSPORINE [Concomitant]
     Indication: PROPHYLAXIS AGAINST TRANSPLANT REJECTION
     Dosage: Varying between 100-150 mg twice daily
     Route: 048
     Dates: start: 20120517
  7. AZATHIOPRINE [Concomitant]
     Indication: PROPHYLAXIS AGAINST TRANSPLANT REJECTION
     Dosage: 100 mg, BID
     Route: 048
     Dates: start: 20120517, end: 20120620

REACTIONS (9)
  - Arthralgia [Recovered/Resolved]
  - Joint stiffness [Recovered/Resolved]
  - Myalgia [Recovered/Resolved]
  - Angina unstable [Unknown]
  - Myocardial ischaemia [Unknown]
  - Inflammatory marker increased [Recovered/Resolved]
  - White blood cell count increased [Recovered/Resolved]
  - C-reactive protein increased [Recovered/Resolved]
  - Eosinophil count increased [Recovered/Resolved]
